FAERS Safety Report 18952786 (Version 2)
Quarter: 2021Q2

REPORT INFORMATION
  Report Type: Report from Study
  Country: US (occurrence: US)
  Receive Date: 20210301
  Receipt Date: 20210427
  Transmission Date: 20210717
  Serious: Yes (Hospitalization)
  Sender: FDA-Public Use
  Company Number: US-ASTELLAS-2021US004787

PATIENT
  Sex: Male

DRUGS (4)
  1. ENZALUTAMIDE [Suspect]
     Active Substance: ENZALUTAMIDE
     Dosage: 80 MG, TWICE DAILY (80 MG IN THE MORNING AND 80 MG IN THE EVENING)
     Route: 048
  2. ENZALUTAMIDE [Suspect]
     Active Substance: ENZALUTAMIDE
     Indication: PROSTATE CANCER
     Route: 048
     Dates: start: 20210201, end: 202102
  3. ENZALUTAMIDE [Suspect]
     Active Substance: ENZALUTAMIDE
     Route: 048
  4. ENZALUTAMIDE [Suspect]
     Active Substance: ENZALUTAMIDE
     Route: 048

REACTIONS (6)
  - Inappropriate schedule of product administration [Unknown]
  - Somnolence [Recovered/Resolved]
  - Pain [Unknown]
  - Mental disorder [Unknown]
  - Fatigue [Unknown]
  - Anxiety [Recovering/Resolving]
